FAERS Safety Report 25198474 (Version 2)
Quarter: 2025Q2

REPORT INFORMATION
  Report Type: Spontaneous
  Country: JP (occurrence: JP)
  Receive Date: 20250415
  Receipt Date: 20250422
  Transmission Date: 20250717
  Serious: Yes (Hospitalization, Other)
  Sender: CELLTRION
  Company Number: JP-JPNKAYAKU-2025JPNK047834

PATIENT

DRUGS (3)
  1. INFLIXIMAB [Suspect]
     Active Substance: INFLIXIMAB
     Indication: Colitis ulcerative
     Route: 042
  2. HEPARIN [Concomitant]
     Active Substance: HEPARIN SODIUM
     Indication: Arterial occlusive disease
     Route: 065
  3. ASPIRIN [Concomitant]
     Active Substance: ASPIRIN
     Indication: Arterial occlusive disease
     Route: 065

REACTIONS (6)
  - Antiphospholipid syndrome [Recovered/Resolved]
  - Proteinuria [Unknown]
  - Thrombocytopenia [Unknown]
  - Hypertension [Unknown]
  - Oedema [Unknown]
  - Maternal exposure during pregnancy [Unknown]
